FAERS Safety Report 5724303-3 (Version None)
Quarter: 2008Q2

REPORT INFORMATION
  Report Type: 
  Country: None (occurrence: None)
  Receive Date: 20080430
  Receipt Date: 20080421
  Transmission Date: 20081010
  Serious: Yes (Hospitalization, Other)
  Sender: FDA-Public Use
  Company Number: US-PFIZER INC-2007064628

PATIENT
  Sex: Male
  Weight: 49.9 kg

DRUGS (2)
  1. CELEBREX [Suspect]
     Indication: BACK PAIN
  2. CELEBREX [Suspect]
     Indication: ARTHRITIS

REACTIONS (1)
  - MYOCARDIAL INFARCTION [None]
